FAERS Safety Report 7416953-3 (Version None)
Quarter: 2011Q2

REPORT INFORMATION
  Report Type: 
  Country: None (occurrence: None)
  Receive Date: 20110415
  Receipt Date: 20110411
  Transmission Date: 20111010
  Serious: Yes (Other)
  Sender: FDA-Public Use
  Company Number: JP-ROXANE LABORATORIES, INC.-2011-DE-02424GD

PATIENT
  Age: 73 Year
  Sex: Female

DRUGS (3)
  1. MORPHINE SULFATE [Suspect]
     Indication: ALLERGY TEST
     Dosage: 30 MG
     Route: 048
  2. MORPHINE SULFATE [Suspect]
     Indication: PAIN
  3. CHEMOTHERAPY [Concomitant]
     Indication: MULTIPLE MYELOMA

REACTIONS (4)
  - PYREXIA [None]
  - LYMPHADENOPATHY [None]
  - PRURITUS [None]
  - DERMATITIS EXFOLIATIVE [None]
